FAERS Safety Report 5448220-1 (Version None)
Quarter: 2007Q3

REPORT INFORMATION
  Report Type: 
  Country: None (occurrence: None)
  Receive Date: 20070906
  Receipt Date: 20070906
  Transmission Date: 20080115
  Serious: Yes (Hospitalization, Disabling)
  Sender: FDA-Public Use
  Company Number: None

PATIENT
  Age: 80 Year
  Sex: Female

DRUGS (2)
  1. FOSPHENYTOIN [Suspect]
     Indication: CONVULSION
     Dosage: 1 GM ONCE IV
     Route: 042
     Dates: start: 20070419, end: 20070419
  2. FOSPHENYTOIN [Suspect]
     Indication: CONVULSION
     Dosage: 300 MG Q24H IV
     Route: 042
     Dates: start: 20070419, end: 20070422

REACTIONS (1)
  - HEPATITIS [None]
